FAERS Safety Report 5161820-1 (Version None)
Quarter: 2006Q4

REPORT INFORMATION
  Report Type: 
  Country: None (occurrence: None)
  Receive Date: 20061130
  Receipt Date: 20060831
  Transmission Date: 20070319
  Serious: Yes (Life-Threatening, Hospitalization)
  Sender: FDA-Public Use
  Company Number: PHNU2006DE02976

PATIENT
  Age: 60 Year
  Sex: Male

DRUGS (9)
  1. SIMULECT [Suspect]
     Indication: RENAL TRANSPLANT
     Dosage: 20 MG, ONCE/SINGLE
     Dates: start: 20060829, end: 20060829
  2. TACROLIMUS [Concomitant]
     Indication: RENAL TRANSPLANT
     Dates: start: 20060829
  3. MYCOPHENOLATE MOFETIL [Concomitant]
     Indication: RENAL TRANSPLANT
     Dates: start: 20060829
  4. CORTISONE ACETATE [Concomitant]
     Indication: RENAL TRANSPLANT
  5. SEVOFLURANE [Concomitant]
  6. ACETAMINOPHEN [Concomitant]
  7. EPHEDRINE [Concomitant]
  8. FENTANYL [Concomitant]
  9. ATRACURIUM BESYLATE [Concomitant]

REACTIONS (9)
  - BLOOD POTASSIUM INCREASED [None]
  - CYTOKINE RELEASE SYNDROME [None]
  - DIALYSIS [None]
  - INTUBATION [None]
  - OXYGEN SATURATION DECREASED [None]
  - PULMONARY OEDEMA [None]
  - RENAL FAILURE ACUTE [None]
  - SHOCK [None]
  - VASODILATATION [None]
